FAERS Safety Report 19500273 (Version 1)
Quarter: 2021Q3

REPORT INFORMATION
  Report Type: Spontaneous
  Country: US (occurrence: US)
  Receive Date: 20210707
  Receipt Date: 20210707
  Transmission Date: 20211014
  Serious: Yes (Other)
  Sender: FDA-Public Use
  Company Number: US-CIPLA LTD.-2021US04698

PATIENT

DRUGS (12)
  1. BLEOMYCIN SULPHATE [Suspect]
     Active Substance: BLEOMYCIN SULFATE
     Indication: METASTASES TO LUNG
  2. BLEOMYCIN SULPHATE [Suspect]
     Active Substance: BLEOMYCIN SULFATE
     Indication: METASTASES TO PANCREAS
  3. BLEOMYCIN SULPHATE [Suspect]
     Active Substance: BLEOMYCIN SULFATE
     Indication: TESTICULAR GERM CELL CANCER METASTATIC
     Dosage: UNK, CYCLICAL
     Route: 065
  4. BLEOMYCIN SULPHATE [Suspect]
     Active Substance: BLEOMYCIN SULFATE
     Indication: METASTASES TO CENTRAL NERVOUS SYSTEM
  5. ETOPOSIDE. [Concomitant]
     Active Substance: ETOPOSIDE
     Indication: TESTICULAR GERM CELL CANCER METASTATIC
     Dosage: UNK, CYCLICAL
     Route: 065
  6. ETOPOSIDE. [Concomitant]
     Active Substance: ETOPOSIDE
     Indication: METASTASES TO LUNG
  7. ETOPOSIDE. [Concomitant]
     Active Substance: ETOPOSIDE
     Indication: METASTASES TO PANCREAS
  8. CISPLATIN. [Concomitant]
     Active Substance: CISPLATIN
     Indication: TESTICULAR GERM CELL CANCER METASTATIC
     Dosage: UNK, CYCLICAL
     Route: 065
  9. CISPLATIN. [Concomitant]
     Active Substance: CISPLATIN
     Indication: METASTASES TO LUNG
  10. ETOPOSIDE. [Concomitant]
     Active Substance: ETOPOSIDE
     Indication: METASTASES TO CENTRAL NERVOUS SYSTEM
  11. CISPLATIN. [Concomitant]
     Active Substance: CISPLATIN
     Indication: METASTASES TO CENTRAL NERVOUS SYSTEM
  12. CISPLATIN. [Concomitant]
     Active Substance: CISPLATIN
     Indication: METASTASES TO PANCREAS

REACTIONS (3)
  - Traumatic lung injury [Unknown]
  - Toxicity to various agents [Unknown]
  - Lung diffusion test decreased [Unknown]
